FAERS Safety Report 6274326-3 (Version None)
Quarter: 2009Q3

REPORT INFORMATION
  Report Type: 
  Country: None (occurrence: None)
  Receive Date: 20090720
  Receipt Date: 20090717
  Transmission Date: 20100115
  Serious: Yes (Hospitalization)
  Sender: FDA-Public Use
  Company Number: ES-BRISTOL-MYERS SQUIBB COMPANY-14609481

PATIENT
  Age: 65 Year
  Sex: Female
  Weight: 68 kg

DRUGS (7)
  1. CISPLATIN [Suspect]
     Indication: GASTRIC CANCER
     Dosage: ONGOING; CYCLES 1 + 2
     Route: 042
     Dates: start: 20090129, end: 20090129
  2. SUNITINIB MALATE [Suspect]
     Indication: GASTRIC CANCER
     Dosage: CYCLES 1 + 2
     Route: 048
     Dates: start: 20090129
  3. FLUOROURACIL [Suspect]
     Indication: GASTRIC CANCER
     Dosage: ONGOING; CYCLES 1 + 2; IN CYCLE 3 7000MG(96 HRS)
     Route: 042
     Dates: start: 20090129, end: 20090129
  4. OMEPRAZOLE [Concomitant]
     Dates: start: 20090101
  5. LEXATIN [Concomitant]
     Dates: start: 20090101
  6. ROTIGOTINE [Concomitant]
     Dates: start: 20090101
  7. SINEMET [Concomitant]
     Dates: start: 20090101

REACTIONS (2)
  - FEBRILE NEUTROPENIA [None]
  - MUCOSAL INFLAMMATION [None]
